FAERS Safety Report 24201158 (Version 2)
Quarter: 2024Q3

REPORT INFORMATION
  Report Type: Spontaneous
  Country: US (occurrence: US)
  Receive Date: 20240812
  Receipt Date: 20240819
  Transmission Date: 20241017
  Serious: No
  Sender: PFIZER
  Company Number: US-PFIZER INC-202400233539

PATIENT
  Age: 36 Year
  Sex: Female

DRUGS (2)
  1. CIBINQO [Suspect]
     Active Substance: ABROCITINIB
     Indication: Eczema
     Dosage: TAKE ONE TABLET ONCE DAILY
  2. CIBINQO [Suspect]
     Active Substance: ABROCITINIB
     Indication: Psoriasis

REACTIONS (4)
  - Therapeutic response unexpected [Unknown]
  - Hair growth abnormal [Unknown]
  - Drug ineffective [Unknown]
  - Condition aggravated [Unknown]
